FAERS Safety Report 18991644 (Version 1)
Quarter: 2021Q1

REPORT INFORMATION
  Report Type: Spontaneous
  Country: US (occurrence: US)
  Receive Date: 20210310
  Receipt Date: 20210310
  Transmission Date: 20210420
  Serious: No
  Sender: FDA-Public Use
  Company Number: US-TEVA-2021-US-1879458

PATIENT
  Age: 62 Year
  Sex: Female

DRUGS (3)
  1. TRICOR [Concomitant]
     Active Substance: FENOFIBRATE
     Dates: start: 20201104
  2. AJOVY [Suspect]
     Active Substance: FREMANEZUMAB-VFRM
  3. AJOVY [Suspect]
     Active Substance: FREMANEZUMAB-VFRM
     Indication: MIGRAINE
     Route: 065
     Dates: start: 20201204

REACTIONS (1)
  - Hyperhidrosis [Unknown]

NARRATIVE: CASE EVENT DATE: 20201204
